FAERS Safety Report 14598892 (Version 1)
Quarter: 2018Q1

REPORT INFORMATION
  Report Type: Spontaneous
  Country: DE (occurrence: DE)
  Receive Date: 20180305
  Receipt Date: 20180305
  Transmission Date: 20180509
  Serious: Yes (Other)
  Sender: FDA-Public Use
  Company Number: DE-AUROBINDO-AUR-APL-2018-007589

PATIENT
  Age: 53 Year
  Sex: Male

DRUGS (6)
  1. AMINEURIN [Suspect]
     Active Substance: AMITRIPTYLINE HYDROCHLORIDE
     Dosage: 1 DOSAGE FORM FRIDAY
  2. AMINEURIN [Suspect]
     Active Substance: AMITRIPTYLINE HYDROCHLORIDE
     Dosage: 1 DOSAGE FORM SUNDAY
  3. ZOLPIDEM [Suspect]
     Active Substance: ZOLPIDEM\ZOLPIDEM TARTRATE
     Indication: PRODUCT USED FOR UNKNOWN INDICATION
     Dosage: 9-12 TABLTES PER DAY ()
     Route: 065
  4. AMINEURIN [Suspect]
     Active Substance: AMITRIPTYLINE HYDROCHLORIDE
     Dosage: 2 DOSAGE FORM ON SATURDAY
  5. AMINEURIN [Suspect]
     Active Substance: AMITRIPTYLINE HYDROCHLORIDE
     Indication: PRODUCT USED FOR UNKNOWN INDICATION
     Dosage: 25 MG, (0-1-0)
     Route: 065
  6. AMINEURIN [Suspect]
     Active Substance: AMITRIPTYLINE HYDROCHLORIDE
     Dosage: 1 DOSAGE FORM MONDAY

REACTIONS (11)
  - Fatigue [Recovered/Resolved]
  - Drug dependence [Unknown]
  - Constipation [Recovered/Resolved]
  - Dysgeusia [Unknown]
  - Increased appetite [Unknown]
  - Overdose [Unknown]
  - Chromaturia [Unknown]
  - Psoriasis [Unknown]
  - Rash [Unknown]
  - Confusional state [Unknown]
  - Loss of libido [Unknown]

NARRATIVE: CASE EVENT DATE: 2014
